FAERS Safety Report 9413266 (Version 1)
Quarter: 2013Q3

REPORT INFORMATION
  Report Type: Spontaneous
  Country: None (occurrence: None)
  Receive Date: 20130709
  Receipt Date: 20130709
  Transmission Date: 20140515
  Serious: Yes (Other)
  Sender: FDA-Public Use
  Company Number: 08-AUR-05429

PATIENT
  Age: 72 Hour
  Sex: Male

DRUGS (1)
  1. PAROXETINE [Suspect]
     Indication: PRODUCT USED FOR UNKNOWN INDICATION
     Dosage: 20 MG 1 IN 1 D
     Route: 064

REACTIONS (2)
  - Maternal drugs affecting foetus [None]
  - Electrocardiogram QT prolonged [None]
